FAERS Safety Report 21782398 (Version 2)
Quarter: 2023Q1

REPORT INFORMATION
  Report Type: Spontaneous
  Country: IT (occurrence: None)
  Receive Date: 20221227
  Receipt Date: 20230112
  Transmission Date: 20230417
  Serious: Yes (Death, Hospitalization, Other)
  Sender: FDA-Public Use
  Company Number: IT-ROCHE-3248300

PATIENT
  Age: 65 Year
  Sex: Male

DRUGS (10)
  1. ENSPRYNG [Suspect]
     Active Substance: SATRALIZUMAB-MWGE
     Indication: Neuromyelitis optica spectrum disorder
     Dosage: THE RECOMMENDED LOADING DOSE IS 120 MG, BY SUBCUTANEOUS (S.C.) INJECTION, EVERY TWO WEEKS FOR THE FI
     Route: 058
     Dates: start: 20221125, end: 20221125
  2. VEKLURY [Suspect]
     Active Substance: REMDESIVIR
     Indication: COVID-19
     Dosage: EARLY TREATMENT DAY 1: 200 MG/DAY DAY 2-3: 100 MG/DAY
     Route: 065
     Dates: start: 20221216, end: 20221218
  3. MESALAMINE [Concomitant]
     Active Substance: MESALAMINE
     Indication: Inflammatory bowel disease
     Dosage: 800 MG (1 CP) TWICE A DAY
     Dates: start: 20221212
  4. LYRICA [Concomitant]
     Active Substance: PREGABALIN
     Indication: Neuralgia
     Dosage: 75 MILLIGRAMS TWICE A DAY
  5. ALIZAPRIDE HYDROCHLORIDE [Concomitant]
     Active Substance: ALIZAPRIDE HYDROCHLORIDE
     Indication: Nausea
     Dosage: DOSE 50 MG/ML??100 MILLIGRAMS/DAY
     Dates: start: 20221217
  6. CIPROFLOXACIN [Concomitant]
     Active Substance: CIPROFLOXACIN
     Dosage: 500 MG (1 CP) TWICE A DAY
     Dates: start: 20221205, end: 20221207
  7. MORFINA CLORHIDRATO [Concomitant]
     Indication: Sedation
     Dosage: 20 MILLIGRAMS/DAY?DOSE :10 MG/ML
     Dates: start: 20221217
  8. LORMETAZEPAM [Concomitant]
     Active Substance: LORMETAZEPAM
     Indication: Insomnia
     Dosage: DOSE: 2.5 MG/ML?1 MILLIGRAM PER DAY (10 DROPS PER DAY)
  9. PANTOPRAZOLE SODIUM [Concomitant]
     Active Substance: PANTOPRAZOLE SODIUM
     Dosage: 20 MILLIGRAMS PER DAY
  10. SILODOSIN [Concomitant]
     Active Substance: SILODOSIN
     Indication: Benign prostatic hyperplasia
     Dosage: 8 MILLIGRAMS (1 CPS) PER DAY

REACTIONS (9)
  - Colitis [Fatal]
  - SARS-CoV-2 test positive [Fatal]
  - Lung adenocarcinoma [Fatal]
  - Respiratory failure [Fatal]
  - Circulatory collapse [Fatal]
  - Pleural effusion [Fatal]
  - Optic nerve disorder [Unknown]
  - Paraplegia [Unknown]
  - Visual acuity reduced [Unknown]

NARRATIVE: CASE EVENT DATE: 20221130
